FAERS Safety Report 16777240 (Version 2)
Quarter: 2019Q4

REPORT INFORMATION
  Report Type: Spontaneous
  Country: US (occurrence: US)
  Receive Date: 20190905
  Receipt Date: 20191122
  Transmission Date: 20200122
  Serious: Yes (Hospitalization, Other)
  Sender: FDA-Public Use
  Company Number: US-ASTRAZENECA-2019SF26021

PATIENT
  Age: 26511 Day
  Sex: Female
  Weight: 117 kg

DRUGS (45)
  1. ACETAMINOPHEN. [Concomitant]
     Active Substance: ACETAMINOPHEN
  2. VITAMIN B [Concomitant]
     Active Substance: VITAMIN B
  3. CARVEDIOL [Concomitant]
     Active Substance: CARVEDILOL
  4. ATROPIN [Concomitant]
     Active Substance: ATROPINE
  5. CLINDAMYCIN. [Concomitant]
     Active Substance: CLINDAMYCIN
  6. BACITRACIN. [Concomitant]
     Active Substance: BACITRACIN
  7. ONGLYZA [Suspect]
     Active Substance: SAXAGLIPTIN HYDROCHLORIDE
     Indication: TYPE 2 DIABETES MELLITUS
     Route: 048
     Dates: start: 20181018
  8. ONGLYZA [Suspect]
     Active Substance: SAXAGLIPTIN HYDROCHLORIDE
     Indication: TYPE 2 DIABETES MELLITUS
     Route: 048
     Dates: start: 20180718
  9. GABAPENTIN. [Concomitant]
     Active Substance: GABAPENTIN
  10. HYDROCODONE [Concomitant]
     Active Substance: HYDROCODONE
  11. DUREZOL [Concomitant]
     Active Substance: DIFLUPREDNATE
  12. TIMOLOL. [Concomitant]
     Active Substance: TIMOLOL
  13. OMEPRAZOLE. [Concomitant]
     Active Substance: OMEPRAZOLE
  14. ZYRTEC [Concomitant]
     Active Substance: CETIRIZINE HYDROCHLORIDE
  15. CALCIUM ACETATE. [Concomitant]
     Active Substance: CALCIUM ACETATE
  16. ONDANSETRON [Concomitant]
     Active Substance: ONDANSETRON
  17. BISACODYL. [Concomitant]
     Active Substance: BISACODYL
  18. RANITIDIN [Concomitant]
     Active Substance: RANITIDINE HYDROCHLORIDE
  19. RENVELA [Concomitant]
     Active Substance: SEVELAMER CARBONATE
  20. HYDRALAZINE [Concomitant]
     Active Substance: HYDRALAZINE HYDROCHLORIDE
  21. DITROPAN [Concomitant]
     Active Substance: OXYBUTYNIN CHLORIDE
  22. BRIMONIDINE [Concomitant]
     Active Substance: BRIMONIDINE TARTRATE
  23. LIDOCAINE. [Concomitant]
     Active Substance: LIDOCAINE
  24. PREDNISON [Concomitant]
     Active Substance: PREDNISONE
  25. SYNTHROID [Concomitant]
     Active Substance: LEVOTHYROXINE SODIUM
  26. FOLIC ACID. [Concomitant]
     Active Substance: FOLIC ACID
  27. TRADJENTA [Concomitant]
     Active Substance: LINAGLIPTIN
  28. SIMVASTATIN. [Concomitant]
     Active Substance: SIMVASTATIN
  29. LOPERAMIDE [Concomitant]
     Active Substance: LOPERAMIDE
  30. NITROFURANTOIN. [Concomitant]
     Active Substance: NITROFURANTOIN
  31. CLONIDINE. [Concomitant]
     Active Substance: CLONIDINE
  32. LASIX [Concomitant]
     Active Substance: FUROSEMIDE
  33. DIPHENHYDRAMINE. [Concomitant]
     Active Substance: DIPHENHYDRAMINE
  34. DIAMOX SEQUELS [Concomitant]
     Active Substance: ACETAZOLAMIDE
  35. VENTOLIN [Concomitant]
     Active Substance: ALBUTEROL SULFATE
  36. ZESTRIL [Concomitant]
     Active Substance: LISINOPRIL
  37. EPOETIN [Concomitant]
     Active Substance: ERYTHROPOIETIN
  38. MORPHINE [Concomitant]
     Active Substance: MORPHINE
  39. MENTHOL. [Concomitant]
     Active Substance: MENTHOL
  40. APRESOLINE HYDROCHLORIDE [Concomitant]
     Active Substance: HYDRALAZINE HYDROCHLORIDE
  41. LEVEMIR [Concomitant]
     Active Substance: INSULIN DETEMIR
  42. AMLODIPINE [Concomitant]
     Active Substance: AMLODIPINE BESYLATE
  43. LIPITOR [Concomitant]
     Active Substance: ATORVASTATIN CALCIUM
  44. CILOSTAZOL. [Concomitant]
     Active Substance: CILOSTAZOL
  45. PANTOPRAZOLE [Concomitant]
     Active Substance: PANTOPRAZOLE

REACTIONS (5)
  - Myocardial infarction [Unknown]
  - Acute myocardial infarction [Unknown]
  - Cardiac failure [Unknown]
  - Cardiac failure congestive [Unknown]
  - Left ventricular failure [Unknown]

NARRATIVE: CASE EVENT DATE: 20171201
